FAERS Safety Report 10325615 (Version 2)
Quarter: 2015Q1

REPORT INFORMATION
  Report Type: Other
  Country: US (occurrence: US)
  Receive Date: 20140720
  Receipt Date: 20150323
  Transmission Date: 20150720
  Serious: Yes (Hospitalization, Other)
  Sender: FDA-Public Use
  Company Number: US-GSKPPD-2014GSK039011

PATIENT
  Age: 75 Year
  Sex: Male
  Weight: 88 kg

DRUGS (6)
  1. COUMADIN [Concomitant]
     Active Substance: WARFARIN SODIUM
  2. NITRO-DUR [Concomitant]
     Active Substance: NITROGLYCERIN
     Dosage: FORM OF ADMIN PATCH
     Route: 062
  3. AVANDIA [Suspect]
     Active Substance: ROSIGLITAZONE MALEATE
     Indication: DIABETES MELLITUS
     Dosage: DATES OF AVANDIA USE COULD NOT BE CONFIRMED IN RECORDS REVIEWED.
     Route: 048
  4. LISINOPRIL. [Concomitant]
     Active Substance: LISINOPRIL
  5. AMIODARONE [Concomitant]
     Active Substance: AMIODARONE
  6. AVANDAMET [Suspect]
     Active Substance: METFORMIN HYDROCHLORIDE\ROSIGLITAZONE MALEATE
     Indication: DIABETES MELLITUS
     Dosage: UNIT DOSE 4/500MG?DATES OF AVANDAMET USE COULD NOT BE CONFIRMED IN RECORDS REVIEWED.
     Route: 048
     Dates: end: 2004

REACTIONS (1)
  - Cardiac failure congestive [Recovered/Resolved]

NARRATIVE: CASE EVENT DATE: 20040601
